FAERS Safety Report 10070800 (Version 1)
Quarter: 2014Q2

REPORT INFORMATION
  Report Type: Spontaneous
  Country: IT (occurrence: IT)
  Receive Date: 20140410
  Receipt Date: 20140410
  Transmission Date: 20141212
  Serious: Yes (Hospitalization, Other)
  Sender: FDA-Public Use
  Company Number: IT-ROXANE LABORATORIES, INC.-2014-RO-00551RO

PATIENT
  Age: 60 Year
  Sex: Male
  Weight: 115 kg

DRUGS (5)
  1. BICALUTAMIDE [Suspect]
     Indication: PROSTATE CANCER METASTATIC
     Route: 065
     Dates: start: 200905, end: 201104
  2. PREDNISONE [Suspect]
     Indication: PROSTATIC SPECIFIC ANTIGEN INCREASED
     Dosage: 12.5 MG
     Route: 065
     Dates: start: 201104
  3. LUTENIZING HORMONE RELEASING HORMONE ANALOG [Suspect]
     Indication: PROSTATE CANCER METASTATIC
     Route: 065
     Dates: start: 200905
  4. DOCETAXEL [Suspect]
     Indication: METASTASES TO BONE
     Route: 065
     Dates: start: 201110
  5. CABAZITAXEL [Suspect]
     Indication: METASTASES TO BONE
     Route: 065
     Dates: start: 201204

REACTIONS (2)
  - Intracranial pressure increased [Recovered/Resolved]
  - Weight increased [Unknown]
